FAERS Safety Report 5742584-7 (Version None)
Quarter: 2008Q2

REPORT INFORMATION
  Report Type: 
  Country: None (occurrence: None)
  Receive Date: 20080519
  Receipt Date: 20080514
  Transmission Date: 20081010
  Serious: Yes (Hospitalization)
  Sender: FDA-Public Use
  Company Number: JP-AVENTIS-200811465JP

PATIENT
  Age: 56 Year
  Sex: Male

DRUGS (1)
  1. LANTUS [Suspect]
     Route: 058
     Dates: start: 20080507

REACTIONS (1)
  - HEPATITIS FULMINANT [None]
